FAERS Safety Report 17240554 (Version 1)
Quarter: 2020Q1

REPORT INFORMATION
  Report Type: Spontaneous
  Country: JP (occurrence: JP)
  Receive Date: 20200107
  Receipt Date: 20200107
  Transmission Date: 20200409
  Serious: Yes (Other)
  Sender: FDA-Public Use
  Company Number: JP-SCIEGEN PHARMACEUTICALS INC-2019SCILIT00398

PATIENT
  Age: 63 Year
  Sex: Female

DRUGS (2)
  1. DONEPEZIL HYDROCHLORIDE TABLETS [Suspect]
     Active Substance: DONEPEZIL HYDROCHLORIDE
  2. LEVODOPA [Interacting]
     Active Substance: LEVODOPA

REACTIONS (2)
  - Progressive supranuclear palsy [Unknown]
  - Loss of personal independence in daily activities [Unknown]
